FAERS Safety Report 7972583-6 (Version None)
Quarter: 2011Q4

REPORT INFORMATION
  Report Type: 
  Country: None (occurrence: None)
  Receive Date: 20111213
  Receipt Date: 20111130
  Transmission Date: 20120403
  Serious: Yes (Hospitalization)
  Sender: FDA-Public Use
  Company Number: CA-JNJFOC-20111203844

PATIENT
  Sex: Male
  Weight: 80.6 kg

DRUGS (2)
  1. REMICADE [Suspect]
     Indication: CROHN'S DISEASE
     Route: 042
     Dates: start: 20090319
  2. ANTIBIOTICS [Concomitant]

REACTIONS (2)
  - STAPHYLOCOCCAL INFECTION [None]
  - RECTAL HAEMORRHAGE [None]
